FAERS Safety Report 16771867 (Version 1)
Quarter: 2019Q3

REPORT INFORMATION
  Report Type: Spontaneous
  Country: DE (occurrence: DE)
  Receive Date: 20190904
  Receipt Date: 20190904
  Transmission Date: 20191005
  Serious: Yes (Other)
  Sender: FDA-Public Use
  Company Number: DE-MYLANLABS-2019M1082170

PATIENT
  Age: 1 Day
  Sex: Female
  Weight: 2.84 kg

DRUGS (3)
  1. BISOPROLOL [Suspect]
     Active Substance: BISOPROLOL
     Indication: VENTRICULAR EXTRASYSTOLES
     Dosage: 2.5 MILLIGRAM, QD
     Route: 064
     Dates: start: 20180224, end: 20181201
  2. BUDECORT [Concomitant]
     Active Substance: BUDESONIDE
     Indication: ASTHMA
     Dosage: 400 MICROGRAM, QD
     Route: 064
     Dates: start: 20180224, end: 20180317
  3. FLUOXETINE [Concomitant]
     Active Substance: FLUOXETINE HYDROCHLORIDE
     Indication: DEPRESSION
     Dosage: 20 MILLIGRAM, QD
     Route: 064
     Dates: start: 20180224, end: 20180319

REACTIONS (6)
  - Small for dates baby [Recovered/Resolved]
  - Infantile apnoea [Recovered/Resolved]
  - Bradycardia neonatal [Recovered/Resolved]
  - Hypoglycaemia neonatal [Recovered/Resolved]
  - Selective eating disorder [Recovered/Resolved]
  - Foetal exposure during pregnancy [Recovered/Resolved]

NARRATIVE: CASE EVENT DATE: 20181201
